FAERS Safety Report 14582406 (Version 1)
Quarter: 2018Q1

REPORT INFORMATION
  Report Type: Spontaneous
  Country: US (occurrence: US)
  Receive Date: 20180227
  Receipt Date: 20180227
  Transmission Date: 20180509
  Serious: No
  Sender: FDA-Public Use
  Company Number: None

PATIENT

DRUGS (1)
  1. HEPARIN, 1000 UNITS/ML IN 10 ML AN [Suspect]
     Active Substance: HEPARIN SODIUM

REACTIONS (1)
  - Product measured potency issue [None]
